FAERS Safety Report 9668114 (Version 1)
Quarter: 2013Q4

REPORT INFORMATION
  Report Type: Spontaneous
  Country: US (occurrence: None)
  Receive Date: 20131101
  Receipt Date: 20131101
  Transmission Date: 20140711
  Serious: Yes (Hospitalization)
  Sender: FDA-Public Use
  Company Number: 2013AP009316

PATIENT
  Age: 3 Year
  Sex: Male

DRUGS (2)
  1. DIVALPROEX SODIUM DELAYED-RELEASE TABLETS [Suspect]
     Indication: MYOCLONUS
  2. PHENYTOIN [Suspect]
     Indication: MYOCLONUS

REACTIONS (2)
  - Immune thrombocytopenic purpura [None]
  - Epidermolysis bullosa [None]
